FAERS Safety Report 15994625 (Version 1)
Quarter: 2019Q1

REPORT INFORMATION
  Report Type: Spontaneous
  Country: US (occurrence: US)
  Receive Date: 20190221
  Receipt Date: 20190221
  Transmission Date: 20190418
  Serious: Yes (Disabling, Other)
  Sender: FDA-Public Use
  Company Number: None

PATIENT
  Age: 37 Year
  Sex: Male
  Weight: 90 kg

DRUGS (11)
  1. CLONAZEPAM 1MG [Suspect]
     Active Substance: CLONAZEPAM
     Indication: ANXIETY
     Dosage: ?          QUANTITY:90 TABLET(S);?
     Route: 048
  2. SEROQUEL [Concomitant]
     Active Substance: QUETIAPINE FUMARATE
  3. IBUPROPHEN [Concomitant]
     Active Substance: IBUPROFEN
  4. ALEVE [Concomitant]
     Active Substance: NAPROXEN SODIUM
  5. METOPORAL [Concomitant]
  6. LITHIUM. [Concomitant]
     Active Substance: LITHIUM
  7. CLONAZEPAM 1MG [Suspect]
     Active Substance: CLONAZEPAM
     Indication: EPILEPSY
     Dosage: ?          QUANTITY:90 TABLET(S);?
     Route: 048
  8. SUBOXONE [Concomitant]
     Active Substance: BUPRENORPHINE HYDROCHLORIDE\NALOXONE HYDROCHLORIDE
  9. CLONAZEPAM 1MG [Suspect]
     Active Substance: CLONAZEPAM
     Indication: BIPOLAR DISORDER
     Dosage: ?          QUANTITY:90 TABLET(S);?
     Route: 048
  10. FLEXERAL [Concomitant]
  11. AMOXACILLIN [Concomitant]

REACTIONS (4)
  - Seizure [None]
  - Feeling abnormal [None]
  - Product substitution issue [None]
  - Withdrawal syndrome [None]

NARRATIVE: CASE EVENT DATE: 20190115
